FAERS Safety Report 5258454-7 (Version None)
Quarter: 2007Q1

REPORT INFORMATION
  Report Type: 
  Country: None (occurrence: None)
  Receive Date: 20061117
  Receipt Date: 20051221
  Transmission Date: 20070707
  Serious: Yes (Other)
  Sender: FDA-Public Use
  Company Number: US-JNJFOC-20051106384

PATIENT
  Age: 61 Year
  Sex: Female

DRUGS (8)
  1. LEVAQUIN [Suspect]
     Indication: SINUSITIS
     Dosage: 500 MG
     Dates: start: 20050414, end: 20050419
  2. ADVAIR (SERETIDE MITE) [Concomitant]
  3. ASTELIN [Concomitant]
  4. ALBUTEROL [Concomitant]
  5. NASACORT [Concomitant]
  6. CLARINEX [Concomitant]
  7. PROBENECID [Concomitant]
  8. MAXIDE (DYAZIDE) [Concomitant]

REACTIONS (1)
  - TENDON RUPTURE [None]
